FAERS Safety Report 9004373 (Version 3)
Quarter: 2013Q2

REPORT INFORMATION
  Report Type: Report from Study
  Country: US (occurrence: US)
  Receive Date: 20130108
  Receipt Date: 20130416
  Transmission Date: 20140414
  Serious: Yes (Death, Hospitalization, Other)
  Sender: FDA-Public Use
  Company Number: US-ACTELION-A-US2012-77036

PATIENT
  Age: 39 Year
  Sex: Female

DRUGS (4)
  1. VELETRI [Suspect]
     Indication: PULMONARY ARTERIAL HYPERTENSION
     Dosage: 38 NG/KG, PER MIN
     Route: 042
     Dates: start: 20110318
  2. VELETRI [Suspect]
     Dosage: 44 NG/KG, PER MIN
     Route: 042
     Dates: start: 20110321
  3. TRACLEER [Suspect]
     Indication: PULMONARY ARTERIAL HYPERTENSION
     Dosage: UNK
     Route: 048
  4. ADCIRCA [Concomitant]

REACTIONS (5)
  - Death [Fatal]
  - Gastric cancer [Unknown]
  - Abdominal pain [Unknown]
  - Decreased appetite [Unknown]
  - Weight decreased [Unknown]
